FAERS Safety Report 16619296 (Version 6)
Quarter: 2021Q3

REPORT INFORMATION
  Report Type: Report from Study
  Country: US (occurrence: US)
  Receive Date: 20190723
  Receipt Date: 20210806
  Transmission Date: 20211014
  Serious: Yes (Other)
  Sender: FDA-Public Use
  Company Number: PHEH2019US030460

PATIENT
  Sex: Female

DRUGS (3)
  1. GUSELKUMAB [Suspect]
     Active Substance: GUSELKUMAB
     Indication: PRODUCT USED FOR UNKNOWN INDICATION
     Dosage: UNK
     Route: 065
  2. COSENTYX [Suspect]
     Active Substance: SECUKINUMAB
     Indication: PSORIASIS
     Dosage: 300 MG/KG
     Route: 058
  3. COSENTYX [Suspect]
     Active Substance: SECUKINUMAB
     Dosage: UNK
     Route: 065
     Dates: start: 202003

REACTIONS (10)
  - Weight increased [Unknown]
  - Pain [Unknown]
  - Epistaxis [Unknown]
  - Photopsia [Unknown]
  - Abdominal pain lower [Unknown]
  - Vision blurred [Unknown]
  - Diverticulitis [Unknown]
  - Blindness [Unknown]
  - Fluid retention [Unknown]
  - Incorrect dose administered [Unknown]
